FAERS Safety Report 16549297 (Version 1)
Quarter: 2019Q3

REPORT INFORMATION
  Report Type: Report from Study
  Country: US (occurrence: US)
  Receive Date: 20190709
  Receipt Date: 20190709
  Transmission Date: 20191004
  Serious: Yes (Hospitalization)
  Sender: FDA-Public Use
  Company Number: US-PFIZER INC-2019203114

PATIENT
  Age: 59 Year
  Sex: Female

DRUGS (1)
  1. IBRANCE [Suspect]
     Active Substance: PALBOCICLIB
     Indication: BREAST CANCER FEMALE
     Dosage: 125 MG, CYCLIC (ONCE A DAY FOR 21 DAYS ON, 7 OFF)
     Route: 048
     Dates: start: 20190418, end: 2019

REACTIONS (14)
  - Bone pain [Recovering/Resolving]
  - Dry skin [Unknown]
  - Dyspnoea [Unknown]
  - Weight decreased [Unknown]
  - Musculoskeletal chest pain [Recovering/Resolving]
  - Groin pain [Recovering/Resolving]
  - Fatigue [Unknown]
  - Thrombosis [Recovered/Resolved]
  - Decreased appetite [Unknown]
  - Pain in extremity [Recovering/Resolving]
  - Constipation [Recovering/Resolving]
  - White blood cell count decreased [Unknown]
  - Oesophageal pain [Recovering/Resolving]
  - Fall [Unknown]

NARRATIVE: CASE EVENT DATE: 2019
